FAERS Safety Report 7817719-2 (Version None)
Quarter: 2011Q4

REPORT INFORMATION
  Report Type: 
  Country: None (occurrence: None)
  Receive Date: 20111017
  Receipt Date: 20111007
  Transmission Date: 20120403
  Serious: Yes (Disabling)
  Sender: FDA-Public Use
  Company Number: PT-JNJFOC-20111003088

PATIENT
  Age: 40 Year
  Sex: Female

DRUGS (5)
  1. ARCOXIA [Concomitant]
     Indication: ANTIINFLAMMATORY THERAPY
     Route: 048
  2. TIZANIDINE HCL [Concomitant]
     Indication: MUSCLE SPASMS
     Route: 048
  3. OGASTO [Concomitant]
     Indication: GASTROINTESTINAL DISORDER THERAPY
     Route: 048
  4. ADALGUR [Concomitant]
     Indication: PAIN
     Route: 048
  5. ORTHO EVRA [Suspect]
     Indication: CONTRACEPTION
     Route: 062

REACTIONS (3)
  - TENDONITIS [None]
  - MENSTRUATION IRREGULAR [None]
  - INAPPROPRIATE SCHEDULE OF DRUG ADMINISTRATION [None]
